FAERS Safety Report 4986361-3 (Version None)
Quarter: 2006Q2

REPORT INFORMATION
  Report Type: 
  Country: None (occurrence: None)
  Receive Date: 20060428
  Receipt Date: 20051121
  Transmission Date: 20061013
  Serious: Yes (Hospitalization)
  Sender: FDA-Public Use
  Company Number: FR-GLAXOSMITHKLINE-B0401256A

PATIENT
  Age: 51 Year
  Sex: Female

DRUGS (3)
  1. MALARONE [Suspect]
     Indication: MALARIA PROPHYLAXIS
     Dosage: 1TAB PER DAY
     Route: 048
     Dates: start: 20051001, end: 20051101
  2. EFFEXOR [Concomitant]
     Route: 048
  3. PRAZEPAM [Concomitant]
     Route: 048

REACTIONS (2)
  - ANOREXIA [None]
  - DECREASED INTEREST [None]
